FAERS Safety Report 8500759-8 (Version None)
Quarter: 2012Q3

REPORT INFORMATION
  Report Type: 
  Country: None (occurrence: None)
  Receive Date: 20120710
  Receipt Date: 20120629
  Transmission Date: 20120928
  Serious: No
  Sender: FDA-Public Use
  Company Number: US-ASTRAZENECA-2012SE44643

PATIENT
  Age: 63 Year
  Sex: Male

DRUGS (3)
  1. ASPIRIN [Concomitant]
  2. ATACAND HCT [Suspect]
     Route: 048
  3. TOPROL-XL [Concomitant]

REACTIONS (4)
  - HYPERTENSION [None]
  - DRUG DOSE OMISSION [None]
  - HEADACHE [None]
  - COUGH [None]
